FAERS Safety Report 16390291 (Version 22)
Quarter: 2022Q1

REPORT INFORMATION
  Report Type: Report from Study
  Country: GB (occurrence: GB)
  Receive Date: 20190604
  Receipt Date: 20220322
  Transmission Date: 20220424
  Serious: Yes (Death, Life-Threatening, Hospitalization)
  Sender: FDA-Public Use
  Company Number: GB-EXELIXIS-XL18419021573

PATIENT

DRUGS (16)
  1. CABOZANTINIB [Suspect]
     Active Substance: CABOZANTINIB
     Indication: Renal cell carcinoma
     Dosage: 40 MG, QD
     Route: 048
     Dates: start: 20190116, end: 20190512
  2. CABOZANTINIB [Suspect]
     Active Substance: CABOZANTINIB
     Dosage: 40 MG, QD
     Route: 048
     Dates: start: 20190523, end: 20190728
  3. ALBUTEROL SULFATE [Concomitant]
     Active Substance: ALBUTEROL SULFATE
     Dosage: 1 TO 2 PUFFS, WITH A MINIMUM DOSAGE INTERVAL OF 5 MINUTES
     Dates: start: 20190515
  4. ATENOLOL [Concomitant]
     Active Substance: ATENOLOL
     Dosage: 50 MG, QD
     Route: 048
  5. ATENOLOL [Concomitant]
     Active Substance: ATENOLOL
  6. ATENOLOL [Concomitant]
     Active Substance: ATENOLOL
  7. ATENOLOL [Concomitant]
     Active Substance: ATENOLOL
  8. ATENOLOL [Concomitant]
     Active Substance: ATENOLOL
  9. ATENOLOL [Concomitant]
     Active Substance: ATENOLOL
  10. ATENOLOL [Concomitant]
     Active Substance: ATENOLOL
     Dosage: 50 MG, ONCE DAILY
  11. BECLOMETHASONE DIPROPIONATE [Concomitant]
     Active Substance: BECLOMETHASONE DIPROPIONATE
     Dosage: 2 PUFFS, EVERY 12 HOURS
  12. BECLOMETHASONE DIPROPIONATE [Concomitant]
     Active Substance: BECLOMETHASONE DIPROPIONATE
     Dosage: 2 PUFFS, EVERY 12 HOURS
  13. DEXAMETHASONE [Concomitant]
     Active Substance: DEXAMETHASONE
     Dosage: 1 MG, QD
     Route: 048
  14. DEXAMETHASONE [Concomitant]
     Active Substance: DEXAMETHASONE
     Dosage: 1 MG, ONCE DAILY
  15. LEVOTHYROXINE SODIUM [Concomitant]
     Active Substance: LEVOTHYROXINE SODIUM
     Dosage: 25 UG, QD
     Route: 048
  16. LEVOTHYROXINE SODIUM [Concomitant]
     Active Substance: LEVOTHYROXINE SODIUM
     Dosage: IN MORNING (06:00) EVERYDAY

REACTIONS (4)
  - Urosepsis [Recovered/Resolved with Sequelae]
  - Disease progression [Fatal]
  - Lower respiratory tract infection [Recovered/Resolved]
  - Urosepsis [Recovered/Resolved]

NARRATIVE: CASE EVENT DATE: 20190513
